FAERS Safety Report 7909017-3 (Version None)
Quarter: 2011Q4

REPORT INFORMATION
  Report Type: 
  Country: None (occurrence: None)
  Receive Date: 20111108
  Receipt Date: 20111026
  Transmission Date: 20120403
  Serious: Yes (Other)
  Sender: FDA-Public Use
  Company Number: 2011SP050474

PATIENT
  Age: 78 Year
  Sex: Male

DRUGS (4)
  1. TEMODAL [Suspect]
     Indication: GLIOBLASTOMA MULTIFORME
     Dosage: 400 MG, 400 MG, 300 MG
     Dates: start: 20110928
  2. TEMODAL [Suspect]
     Indication: GLIOBLASTOMA MULTIFORME
     Dosage: 400 MG, 400 MG, 300 MG
     Dates: start: 20111025
  3. TEMODAL [Suspect]
     Indication: GLIOBLASTOMA MULTIFORME
     Dosage: 400 MG, 400 MG, 300 MG
     Dates: start: 20111024
  4. DEXAMETHASONE [Suspect]
     Indication: PRODUCT USED FOR UNKNOWN INDICATION

REACTIONS (6)
  - BRAIN OEDEMA [None]
  - HEADACHE [None]
  - CONSTIPATION [None]
  - ASTHENIA [None]
  - CONFUSIONAL STATE [None]
  - FATIGUE [None]
